FAERS Safety Report 14529298 (Version 1)
Quarter: 2018Q1

REPORT INFORMATION
  Report Type: Spontaneous
  Country: CA (occurrence: CA)
  Receive Date: 20180214
  Receipt Date: 20180214
  Transmission Date: 20180509
  Serious: Yes (Other)
  Sender: FDA-Public Use
  Company Number: CA-TEVA-2018-CA-857515

PATIENT
  Age: 28 Year
  Sex: Female

DRUGS (1)
  1. AMOXICILLIN. [Suspect]
     Active Substance: AMOXICILLIN
     Indication: PHARYNGITIS STREPTOCOCCAL
     Dosage: 1500 MILLIGRAM DAILY;
     Route: 048

REACTIONS (5)
  - Muscle spasms [Unknown]
  - Thrombosis [Unknown]
  - Menorrhagia [Unknown]
  - Menstruation irregular [Unknown]
  - Vaginal haemorrhage [Unknown]
